FAERS Safety Report 8401333-4 (Version None)
Quarter: 2012Q2

REPORT INFORMATION
  Report Type: 
  Country: None (occurrence: None)
  Receive Date: 20120525
  Receipt Date: 20120516
  Transmission Date: 20120825
  Serious: Yes (Death, Disabling, Other)
  Sender: FDA-Public Use
  Company Number: POMP-1000204

PATIENT
  Age: 4 Year
  Sex: Male
  Weight: 16.7 kg

DRUGS (1)
  1. MYOZYME [Suspect]
     Indication: GLYCOGEN STORAGE DISEASE TYPE II
     Dosage: 20 MG/KG, Q2W, INTRAVENOUS
     Route: 042
     Dates: start: 20040204, end: 20080416

REACTIONS (4)
  - LUNG INFECTION [None]
  - PYREXIA [None]
  - RESPIRATORY DISORDER [None]
  - QUADRIPLEGIA [None]
